FAERS Safety Report 4323304-X (Version None)
Quarter: 2004Q1

REPORT INFORMATION
  Report Type: 
  Country: None (occurrence: None)
  Receive Date: 20040323
  Receipt Date: 20040323
  Transmission Date: 20041129
  Serious: Yes (Other)
  Sender: FDA-Public Use
  Company Number: None

PATIENT
  Age: 69 Year
  Sex: Male
  Weight: 69.8 kg

DRUGS (1)
  1. RITUXAN [Suspect]

REACTIONS (2)
  - NAUSEA [None]
  - VOMITING [None]
